FAERS Safety Report 13442128 (Version 1)
Quarter: 2017Q2

REPORT INFORMATION
  Report Type: Spontaneous
  Country: US (occurrence: US)
  Receive Date: 20170413
  Receipt Date: 20170413
  Transmission Date: 20170830
  Serious: Yes (Other)
  Sender: FDA-Public Use
  Company Number: None

PATIENT
  Age: 48 Year
  Sex: Female
  Weight: 49.9 kg

DRUGS (1)
  1. GLATOPA [Suspect]
     Active Substance: GLATIRAMER ACETATE
     Indication: MULTIPLE SCLEROSIS
     Dosage: FREQUENCY - ONCE A DAY?ROUTE - GIVEN INTO/UNDER THE SKIN
     Route: 058
     Dates: start: 20170220

REACTIONS (10)
  - Chest pain [None]
  - Pain [None]
  - Lethargy [None]
  - Injection site pain [None]
  - Musculoskeletal stiffness [None]
  - Arthralgia [None]
  - Quality of life decreased [None]
  - Pain in extremity [None]
  - Myocardial infarction [None]
  - Dyspnoea [None]

NARRATIVE: CASE EVENT DATE: 20170315
